FAERS Safety Report 20809488 (Version 1)
Quarter: 2022Q2

REPORT INFORMATION
  Report Type: Spontaneous
  Country: US (occurrence: None)
  Receive Date: 20220510
  Receipt Date: 20220510
  Transmission Date: 20220721
  Serious: Yes (Death)
  Sender: FDA-Public Use
  Company Number: None

PATIENT
  Sex: Female
  Weight: 90.4 kg

DRUGS (6)
  1. CYCLOPHOSPHAMIDE [Suspect]
     Active Substance: CYCLOPHOSPHAMIDE
  2. CYTARABINE [Concomitant]
  3. METCAPTOPURINE [Concomitant]
  4. METHOTREXATE [Concomitant]
  5. ONCASPAR [Concomitant]
     Active Substance: PEGASPARGASE
  6. VINCRISTINE SULFATE [Concomitant]

REACTIONS (8)
  - Dyspnoea [None]
  - Asthenia [None]
  - Cough [None]
  - Pyrexia [None]
  - Heart rate increased [None]
  - Decreased appetite [None]
  - Oxygen saturation decreased [None]
  - Cardiac arrest [None]

NARRATIVE: CASE EVENT DATE: 20220304
